FAERS Safety Report 10413879 (Version 1)
Quarter: 2014Q3

REPORT INFORMATION
  Report Type: Spontaneous
  Country: US (occurrence: US)
  Receive Date: 20140827
  Receipt Date: 20140827
  Transmission Date: 20150326
  Serious: No
  Sender: FDA-Public Use
  Company Number: US-GALDERMA-US14000127

PATIENT
  Sex: Female

DRUGS (1)
  1. CLOBEX [Suspect]
     Active Substance: CLOBETASOL PROPIONATE
     Dosage: 500 MICROGRAMMES/G
     Route: 061

REACTIONS (3)
  - Seborrhoea [Unknown]
  - Condition aggravated [Unknown]
  - Skin irritation [Unknown]
